FAERS Safety Report 23781124 (Version 1)
Quarter: 2024Q2

REPORT INFORMATION
  Report Type: Spontaneous
  Country: CN (occurrence: None)
  Receive Date: 20240425
  Receipt Date: 20240425
  Transmission Date: 20240716
  Serious: Yes (Life-Threatening)
  Sender: FDA-Public Use
  Company Number: CN-Orion Corporation ORION PHARMA-ENT 2024-0017

PATIENT
  Age: 70 Year
  Sex: Female
  Weight: 42 kg

DRUGS (1)
  1. ENTACAPONE [Suspect]
     Active Substance: ENTACAPONE
     Indication: Parkinson^s disease
     Dates: start: 20240312, end: 20240316

REACTIONS (7)
  - Head discomfort [Recovering/Resolving]
  - Constipation [Recovering/Resolving]
  - Insomnia [Recovering/Resolving]
  - Dizziness [Recovering/Resolving]
  - Poor quality sleep [Unknown]
  - Abdominal distension [Unknown]
  - Malaise [Not Recovered/Not Resolved]

NARRATIVE: CASE EVENT DATE: 20240312
